FAERS Safety Report 22521611 (Version 1)
Quarter: 2023Q2

REPORT INFORMATION
  Report Type: Spontaneous
  Country: US (occurrence: US)
  Receive Date: 20230605
  Receipt Date: 20230605
  Transmission Date: 20230722
  Serious: Yes (Other)
  Sender: FDA-Public Use
  Company Number: US-HQ SPECIALTY-US-2023INT000103

PATIENT

DRUGS (5)
  1. CISPLATIN [Suspect]
     Active Substance: CISPLATIN
     Indication: Pleural mesothelioma malignant
     Dosage: 75 MG/M2, ON DAY 1, 21 DAYS CYCLE
     Route: 042
  2. PEMETREXED [Suspect]
     Active Substance: PEMETREXED
     Indication: Pleural mesothelioma malignant
     Dosage: 500 MG/M2, ON DAY 1, 21 DAY CYCLE
     Route: 042
  3. FOLIC ACID [Concomitant]
     Active Substance: FOLIC ACID
     Indication: Product used for unknown indication
     Dosage: 350 TO 1000 MICROGRAMS, QD, BEGINNING 1 TO 3 WEEKS BEFORE CHEMOTHERAPY
     Route: 048
  4. VITAMIN B12 [Concomitant]
     Active Substance: CYANOCOBALAMIN
     Indication: Product used for unknown indication
     Dosage: 1000 MICROGRAM, 1 TO 3 WEEKS, PRIOR TO THERAPY AND REPEATED EVERY 9 WEEKS WHILE ON STUDY THERAPY
     Route: 030
  5. DEXAMETHASONE [Concomitant]
     Active Substance: DEXAMETHASONE
     Indication: Prophylaxis
     Dosage: UNK

REACTIONS (1)
  - Febrile neutropenia [Unknown]
